FAERS Safety Report 23564694 (Version 1)
Quarter: 2024Q1

REPORT INFORMATION
  Report Type: Spontaneous
  Country: IN (occurrence: IN)
  Receive Date: 20240226
  Receipt Date: 20240226
  Transmission Date: 20240409
  Serious: Yes (Other)
  Sender: FDA-Public Use
  Company Number: IN-MYLANLABS-2024M1016955

PATIENT
  Age: 75 Year
  Sex: Female

DRUGS (5)
  1. ALCOHOL [Suspect]
     Active Substance: ALCOHOL
     Indication: Trigeminal neuralgia
     Dosage: UNK, RECEIVED 0.5 ML
     Route: 065
  2. PREGABALIN [Suspect]
     Active Substance: PREGABALIN
     Indication: Trigeminal neuralgia
     Dosage: UNK
     Route: 065
  3. BACLOFEN [Suspect]
     Active Substance: BACLOFEN
     Indication: Trigeminal neuralgia
     Dosage: UNK
     Route: 065
  4. CARBAMAZEPINE [Suspect]
     Active Substance: CARBAMAZEPINE
     Indication: Trigeminal neuralgia
     Dosage: UNK
     Route: 065
  5. LIDOCAINE HYDROCHLORIDE [Concomitant]
     Active Substance: LIDOCAINE HYDROCHLORIDE
     Indication: Trigeminal neuralgia
     Dosage: UNK, RECEIVED 1 ML
     Route: 065

REACTIONS (4)
  - Injection site necrosis [Unknown]
  - Injection site ulcer [Unknown]
  - Drug ineffective [Unknown]
  - Off label use [Unknown]
